FAERS Safety Report 14350187 (Version 1)
Quarter: 2018Q1

REPORT INFORMATION
  Report Type: Spontaneous
  Country: US (occurrence: US)
  Receive Date: 20180103
  Receipt Date: 20180103
  Transmission Date: 20180509
  Serious: Yes (Other)
  Sender: FDA-Public Use
  Company Number: None

PATIENT
  Age: 63 Year
  Sex: Female
  Weight: 87.4 kg

DRUGS (1)
  1. VARUBI [Suspect]
     Active Substance: ROLAPITANT
     Indication: PROPHYLAXIS OF NAUSEA AND VOMITING
     Dosage: OTHER FREQUENCY:Q 2WKS PRE-CHEMO;?
     Route: 041

REACTIONS (10)
  - Throat clearing [None]
  - Cough [None]
  - Hypertension [None]
  - Feeling hot [None]
  - Back pain [None]
  - Arthralgia [None]
  - Infusion related reaction [None]
  - Abdominal pain upper [None]
  - Flushing [None]
  - Malaise [None]

NARRATIVE: CASE EVENT DATE: 20180103
